FAERS Safety Report 17743268 (Version 1)
Quarter: 2020Q2

REPORT INFORMATION
  Report Type: Spontaneous
  Country: DE (occurrence: DE)
  Receive Date: 20200504
  Receipt Date: 20200504
  Transmission Date: 20200714
  Serious: Yes (Other)
  Sender: FDA-Public Use
  Company Number: NVSC2020DE119377

PATIENT
  Sex: Male

DRUGS (3)
  1. FLUOXETIN 20 - 1 A PHARMA [Suspect]
     Active Substance: FLUOXETINE HYDROCHLORIDE
     Indication: PRODUCT USED FOR UNKNOWN INDICATION
     Dosage: 20 MG, QD
     Route: 065
     Dates: start: 201702
  2. FLUOXETIN 40 - 1 A PHARMA [Suspect]
     Active Substance: FLUOXETINE HYDROCHLORIDE
     Indication: PRODUCT USED FOR UNKNOWN INDICATION
     Dosage: 40 MG, QD
     Route: 065
  3. HEPARIN [Suspect]
     Active Substance: HEPARIN SODIUM
     Indication: THROMBOSIS
     Dosage: UNK UNK, UNKNOWN
     Route: 065
     Dates: start: 2018

REACTIONS (3)
  - Haemorrhage [Unknown]
  - Post procedural haemorrhage [Unknown]
  - Iron deficiency [Recovered/Resolved]

NARRATIVE: CASE EVENT DATE: 2018
